FAERS Safety Report 19909372 (Version 1)
Quarter: 2021Q4

REPORT INFORMATION
  Report Type: Spontaneous
  Country: US (occurrence: US)
  Receive Date: 20211001
  Receipt Date: 20211001
  Transmission Date: 20220303
  Serious: No
  Sender: FDA-Public Use
  Company Number: US-AMARIN PHARMA, INC.-2021AMR000272

PATIENT
  Age: 61 Year
  Sex: Male
  Weight: 88.08 kg

DRUGS (14)
  1. VASCEPA [Suspect]
     Active Substance: ICOSAPENT ETHYL
     Indication: Blood triglycerides increased
     Route: 048
  2. CRESTOR [Concomitant]
     Active Substance: ROSUVASTATIN CALCIUM
     Indication: Blood cholesterol increased
  3. FLEXERIL [Concomitant]
     Active Substance: CYCLOBENZAPRINE HYDROCHLORIDE
     Indication: Prophylaxis
     Dates: start: 2020
  4. ASPIRIN [Concomitant]
     Active Substance: ASPIRIN
     Indication: Anticoagulation drug level therapeutic
     Dates: start: 2014
  5. JANUVIA [Concomitant]
     Active Substance: SITAGLIPTIN PHOSPHATE
     Indication: Cardiac disorder
  6. JARDIANCE [Concomitant]
     Active Substance: EMPAGLIFLOZIN
     Indication: Prophylaxis
  7. GLIPIZIDE [Concomitant]
     Active Substance: GLIPIZIDE
     Indication: Type 2 diabetes mellitus
     Dates: start: 201406
  8. MORPHINE [Concomitant]
     Active Substance: MORPHINE
     Indication: Pain
     Dates: start: 201406
  9. MORPHINE [Concomitant]
     Active Substance: MORPHINE
     Indication: Arthritis
  10. MORPHINE [Concomitant]
     Active Substance: MORPHINE
     Indication: Back pain
  11. METFORMIN [Concomitant]
     Active Substance: METFORMIN HYDROCHLORIDE
     Indication: Type 2 diabetes mellitus
     Dates: start: 201406
  12. 10-325 Hydrocodone/Norco [Concomitant]
     Indication: Arthritis
     Dates: start: 201406
  13. 10-325 Hydrocodone/Norco [Concomitant]
     Indication: Back pain
  14. BANOPHEN [Concomitant]
     Active Substance: DIPHENHYDRAMINE HYDROCHLORIDE
     Indication: Sleep disorder
     Dates: start: 201406

REACTIONS (5)
  - Product taste abnormal [Unknown]
  - Therapy interrupted [Unknown]
  - Product leakage [Unknown]
  - Product physical issue [Unknown]
  - Product odour abnormal [Unknown]
